FAERS Safety Report 11331839 (Version 1)
Quarter: 2015Q3

REPORT INFORMATION
  Report Type: Spontaneous
  Country: US (occurrence: US)
  Receive Date: 20150803
  Receipt Date: 20150803
  Transmission Date: 20151125
  Serious: No
  Sender: FDA-Public Use
  Company Number: US-ELI_LILLY_AND_COMPANY-US200803003717

PATIENT
  Age: 44 Year
  Sex: Female
  Weight: 97.05 kg

DRUGS (3)
  1. PAROXETINE [Concomitant]
     Active Substance: PAROXETINE\PAROXETINE HYDROCHLORIDE
     Dates: start: 20020525, end: 20030525
  2. ZYPREXA [Suspect]
     Active Substance: OLANZAPINE
     Dosage: 10 MG, UNK
     Dates: start: 200201, end: 200301
  3. QUETIAPINE [Concomitant]
     Active Substance: QUETIAPINE
     Dates: start: 20020601, end: 20030101

REACTIONS (3)
  - Hypertension [Unknown]
  - Diabetes mellitus [Not Recovered/Not Resolved]
  - Obesity [Unknown]

NARRATIVE: CASE EVENT DATE: 200302
